FAERS Safety Report 7549167-7 (Version None)
Quarter: 2011Q2

REPORT INFORMATION
  Report Type: 
  Country: None (occurrence: None)
  Receive Date: 20110615
  Receipt Date: 20110601
  Transmission Date: 20111010
  Serious: Yes (Other)
  Sender: FDA-Public Use
  Company Number: PHHY2011DE48668

PATIENT

DRUGS (1)
  1. TASIGNA [Suspect]
     Indication: CHRONIC MYELOID LEUKAEMIA
     Dosage: 600 MG PER DAY
     Route: 048
     Dates: start: 20110125, end: 20110408

REACTIONS (3)
  - PARAESTHESIA [None]
  - MYELODYSPLASTIC SYNDROME UNCLASSIFIABLE [None]
  - HOT FLUSH [None]
